FAERS Safety Report 16659401 (Version 2)
Quarter: 2019Q3

REPORT INFORMATION
  Report Type: Report from Study
  Country: RU (occurrence: RU)
  Receive Date: 20190802
  Receipt Date: 20190808
  Transmission Date: 20191004
  Serious: Yes (Death)
  Sender: FDA-Public Use
  Company Number: RU-ROCHE-2366841

PATIENT
  Age: 65 Year
  Sex: Male

DRUGS (9)
  1. ELIQUIS [Concomitant]
     Active Substance: APIXABAN
     Indication: ATRIAL FIBRILLATION
     Route: 065
     Dates: start: 2013
  2. SOTALOL. [Concomitant]
     Active Substance: SOTALOL
     Indication: ATRIAL FIBRILLATION
     Route: 065
     Dates: start: 20190618
  3. ATEZOLIZUMAB. [Suspect]
     Active Substance: ATEZOLIZUMAB
     Indication: NON-SMALL CELL LUNG CANCER
     Dosage: ON DAY 1 OF EACH 21-DAY CYCLE (EVERY 3 WEEKS) ?MOST RECENT DOSE OF ATEZOLIZUMAB PRIOR TO SAE ONSET O
     Route: 042
     Dates: start: 20190403
  4. NAB-PACLITAXEL [Suspect]
     Active Substance: PACLITAXEL
     Indication: NON-SMALL CELL LUNG CANCER
     Dosage: NAB-PACLITAXEL 100 MG/M^2 WILL BE ADMINISTERED INTRAVENOUSLY ON DAYS 1, 8, AND 15 OF EACH 21 DAY CYC
     Route: 042
     Dates: start: 20190403
  5. CARBOPLATIN. [Suspect]
     Active Substance: CARBOPLATIN
     Indication: NON-SMALL CELL LUNG CANCER
     Dosage: AUC OF 6 MG/ML/MIN WILL BE ADMINISTERED INTRAVENOUSLY ON DAY 1 OF EACH 21-DAY CYCLE AS PER PROTOCOL
     Route: 042
     Dates: start: 20190403
  6. THYROSOL [Concomitant]
     Indication: HYPERTHYROIDISM
     Route: 065
     Dates: start: 20190604
  7. PREDNISOLONE. [Concomitant]
     Active Substance: PREDNISOLONE
     Indication: AUTOIMMUNE EYE DISORDER
     Route: 048
     Dates: start: 20190614
  8. ESOMEPRAZOLE. [Concomitant]
     Active Substance: ESOMEPRAZOLE MAGNESIUM
     Indication: GASTRIC ULCER
     Route: 065
     Dates: start: 2017
  9. ROXERA [Concomitant]
     Active Substance: ROSUVASTATIN CALCIUM
     Indication: MYOCARDIAL ISCHAEMIA
     Route: 065
     Dates: start: 2016

REACTIONS (1)
  - Death [Fatal]

NARRATIVE: CASE EVENT DATE: 20190728
